FAERS Safety Report 13097418 (Version 4)
Quarter: 2020Q4

REPORT INFORMATION
  Report Type: Spontaneous
  Country: US (occurrence: US)
  Receive Date: 20170109
  Receipt Date: 20201013
  Transmission Date: 20210113
  Serious: Yes (Other)
  Sender: FDA-Public Use
  Company Number: US-PFIZER INC-2017004458

PATIENT
  Age: 55 Year
  Sex: Female

DRUGS (3)
  1. PREMARIN [Suspect]
     Active Substance: ESTROGENS, CONJUGATED
     Indication: ROUTINE HEALTH MAINTENANCE
     Dosage: 1.25 MG, DAILY (TAKE 1 TABLET DAILY AS DIRECTED)
     Route: 048
  2. EFFEXOR XR [Suspect]
     Active Substance: VENLAFAXINE HYDROCHLORIDE
     Dosage: 75 MG, UNK
  3. EFFEXOR XR [Suspect]
     Active Substance: VENLAFAXINE HYDROCHLORIDE
     Dosage: 150 MG, UNK

REACTIONS (2)
  - Suicidal ideation [Unknown]
  - Illness [Unknown]
